FAERS Safety Report 6427172-1 (Version None)
Quarter: 2009Q4

REPORT INFORMATION
  Report Type: 
  Country: None (occurrence: None)
  Receive Date: 20091104
  Receipt Date: 20090805
  Transmission Date: 20100525
  Serious: No
  Sender: FDA-Public Use
  Company Number: US-TYCO HEALTHCARE/MALLINCKRODT-T200901499

PATIENT
  Age: 79 Year
  Sex: Female

DRUGS (3)
  1. THALLOUS CHLORIDE TL-201 [Suspect]
     Indication: SCAN MYOCARDIAL PERFUSION
     Dosage: 3 MCI, SINGLE
     Route: 042
     Dates: start: 20090723, end: 20090723
  2. LEXISCAN [Concomitant]
  3. PAIN MEDICATION [Concomitant]

REACTIONS (3)
  - FEELING ABNORMAL [None]
  - MALAISE [None]
  - VOMITING [None]
